FAERS Safety Report 7685221-7 (Version None)
Quarter: 2011Q3

REPORT INFORMATION
  Report Type: 
  Country: None (occurrence: None)
  Receive Date: 20110816
  Receipt Date: 20110808
  Transmission Date: 20111222
  Serious: Yes (Hospitalization)
  Sender: FDA-Public Use
  Company Number: US-SANOFI-AVENTIS-2011SA051225

PATIENT
  Age: 65 Year
  Sex: Male

DRUGS (29)
  1. PLACEBO [Suspect]
     Indication: THROMBOSIS PROPHYLAXIS
     Route: 048
     Dates: start: 20100319, end: 20100401
  2. REGULAR INSULIN [Concomitant]
     Dates: start: 20100319, end: 20100321
  3. INSULIN GLARGINE [Concomitant]
     Dates: start: 20100301
  4. ALPRAZOLAM [Concomitant]
     Dates: start: 20100219
  5. LEVOFLOXACIN [Concomitant]
     Dates: start: 20100319
  6. IPRATROPIUM BROMIDE [Concomitant]
     Dates: start: 20100228
  7. XOPENEX [Concomitant]
     Dates: start: 20100228
  8. ACETAMINOPHEN [Concomitant]
     Dates: start: 20100219
  9. LEVITRA [Concomitant]
     Dates: start: 20100224
  10. INSULIN ASPART [Concomitant]
     Dates: start: 20100228
  11. SIMAVASTATIN [Concomitant]
  12. NICOTINE [Concomitant]
     Dates: start: 20100219
  13. GLYBURIDE [Concomitant]
     Dates: start: 20100219
  14. PIPERACILLIN AND TAZOBACTAM [Concomitant]
     Dates: start: 20100318, end: 20100324
  15. INSULIN HUMAN ISOPHANE [Concomitant]
     Dates: start: 20100321, end: 20100321
  16. CITALOPRAM HYDROBROMIDE [Concomitant]
     Dates: start: 20100219
  17. DILTIAZEM HYDROCHLORIDE [Concomitant]
     Dates: start: 20100219
  18. METFFORMIN HYDROCHLORIDE [Concomitant]
     Dates: start: 20100219
  19. METHYLPREDNISOLONE [Concomitant]
     Dates: start: 20100319, end: 20100324
  20. ATROVENT [Concomitant]
  21. HYDROCHLOROTHIAZIDE [Concomitant]
     Dates: start: 20100219
  22. THEOPHYLLINE [Concomitant]
     Dates: start: 20100219
  23. CLONAZEPAM [Concomitant]
     Dates: start: 20100319
  24. NIACIN [Concomitant]
  25. ENOXAPARIN SODIUM [Suspect]
     Indication: THROMBOSIS PROPHYLAXIS
     Route: 058
     Dates: start: 20100320, end: 20100325
  26. LISINOPRIL [Concomitant]
     Dates: start: 20100219
  27. ALBUTEROL SULFATE [Concomitant]
     Dates: start: 20100219
  28. FUROSEMIDE [Concomitant]
     Dates: start: 20100319
  29. OMEPRAZOLE [Concomitant]

REACTIONS (2)
  - CLONIC CONVULSION [None]
  - CHRONIC OBSTRUCTIVE PULMONARY DISEASE [None]
